FAERS Safety Report 10436009 (Version 1)
Quarter: 2014Q3

REPORT INFORMATION
  Report Type: Spontaneous
  Country: US (occurrence: US)
  Receive Date: 20140908
  Receipt Date: 20140908
  Transmission Date: 20150326
  Serious: No
  Sender: FDA-Public Use
  Company Number: US-GLAXOSMITHKLINE-A1082146A

PATIENT
  Age: 86 Year
  Sex: Female

DRUGS (4)
  1. BREO ELLIPTA [Suspect]
     Active Substance: FLUTICASONE FUROATE\VILANTEROL TRIFENATATE
     Indication: DYSPNOEA
     Dosage: 1PUFF PER DAY
     Route: 055
     Dates: start: 201405
  2. COUMADIN [Concomitant]
     Active Substance: WARFARIN SODIUM
  3. BLOOD PRESSURE MEDICATION [Concomitant]
     Active Substance: UNSPECIFIED INGREDIENT
  4. CHOLESTEROL [Concomitant]
     Active Substance: CHOLESTEROL

REACTIONS (1)
  - Dysphonia [Not Recovered/Not Resolved]
